FAERS Safety Report 4984513-X (Version None)
Quarter: 2006Q2

REPORT INFORMATION
  Report Type: 
  Country: None (occurrence: None)
  Receive Date: 20060421
  Receipt Date: 20060410
  Transmission Date: 20061013
  Serious: Yes (Other)
  Sender: FDA-Public Use
  Company Number: GXKR2006SI02016

PATIENT
  Age: 69 Year
  Sex: Male

DRUGS (1)
  1. WARFARIN SODIUM [Suspect]
     Dosage: FOR EIGHT YEARS

REACTIONS (3)
  - CALCINOSIS [None]
  - CEREBRAL INFARCTION [None]
  - SUBDURAL HAEMATOMA [None]
